FAERS Safety Report 10609674 (Version 2)
Quarter: 2015Q2

REPORT INFORMATION
  Report Type: Spontaneous
  Country: US (occurrence: US)
  Receive Date: 20141126
  Receipt Date: 20150409
  Transmission Date: 20150821
  Serious: Yes (Life-Threatening, Hospitalization, Congenital Anomaly, Other)
  Sender: FDA-Public Use
  Company Number: US-ELI_LILLY_AND_COMPANY-US201411008847

PATIENT

DRUGS (4)
  1. VICODIN [Concomitant]
     Active Substance: ACETAMINOPHEN\HYDROCODONE BITARTRATE
     Route: 064
  2. PROZAC [Suspect]
     Active Substance: FLUOXETINE HYDROCHLORIDE
     Indication: PRODUCT USED FOR UNKNOWN INDICATION
     Dosage: UNK, UNKNOWN
     Route: 064
     Dates: start: 20010927
  3. FLINTSTONES [Concomitant]
     Route: 064
  4. CLOTRIMAZOLE AND BETAMETHASONE [Concomitant]
     Route: 064

REACTIONS (9)
  - Bronchopulmonary dysplasia [Unknown]
  - Premature baby [Unknown]
  - Foetal exposure during pregnancy [Recovered/Resolved]
  - Hypotension [Unknown]
  - Low birth weight baby [Unknown]
  - Patent ductus arteriosus [Unknown]
  - Hyperbilirubinaemia [Unknown]
  - Anaemia neonatal [Unknown]
  - Neonatal respiratory distress syndrome [Unknown]
